FAERS Safety Report 6660512-7 (Version None)
Quarter: 2010Q1

REPORT INFORMATION
  Report Type: 
  Country: None (occurrence: None)
  Receive Date: 20100331
  Receipt Date: 20100323
  Transmission Date: 20100710
  Serious: Yes (Hospitalization, Other)
  Sender: FDA-Public Use
  Company Number: PHHO2010US02834

PATIENT
  Sex: Female
  Weight: 64.1 kg

DRUGS (2)
  1. EXELON [Suspect]
     Indication: DEMENTIA ALZHEIMER'S TYPE
     Dosage: 15CM2
     Route: 062
     Dates: start: 20091115, end: 20100212
  2. ROCEPHIN [Suspect]

REACTIONS (13)
  - DEHYDRATION [None]
  - FAILURE TO THRIVE [None]
  - HYPOKALAEMIA [None]
  - HYPOMAGNESAEMIA [None]
  - HYPONATRAEMIA [None]
  - HYPOTENSION [None]
  - LETHARGY [None]
  - RENAL FAILURE ACUTE [None]
  - SEPSIS [None]
  - STAPHYLOCOCCAL INFECTION [None]
  - URINARY RETENTION [None]
  - URINARY TRACT INFECTION [None]
  - URTICARIA [None]
